FAERS Safety Report 5831835-6 (Version None)
Quarter: 2008Q3

REPORT INFORMATION
  Report Type: 
  Country: None (occurrence: None)
  Receive Date: 20080804
  Receipt Date: 20080725
  Transmission Date: 20090109
  Serious: Yes (Other)
  Sender: FDA-Public Use
  Company Number: JP-JNJFOC-20080707457

PATIENT
  Age: 64 Year
  Sex: Female

DRUGS (4)
  1. RISPERDAL [Suspect]
     Indication: DELIRIUM
     Route: 048
  2. MIANSERIN [Suspect]
     Indication: DELIRIUM
     Route: 065
  3. VALPROIC ACID [Suspect]
     Indication: IRRITABILITY
     Dosage: DOSE INCREASED
     Route: 065
  4. VALPROIC ACID [Suspect]
     Indication: DEPRESSED MOOD
     Route: 065

REACTIONS (1)
  - PNEUMONIA ASPIRATION [None]
